FAERS Safety Report 20470959 (Version 1)
Quarter: 2022Q1

REPORT INFORMATION
  Report Type: Spontaneous
  Country: US (occurrence: None)
  Receive Date: 20220211
  Receipt Date: 20220211
  Transmission Date: 20220423
  Serious: Yes (Death)
  Sender: FDA-Public Use
  Company Number: None

PATIENT
  Age: 72 Year
  Sex: Female

DRUGS (3)
  1. TADALAFIL [Suspect]
     Active Substance: TADALAFIL
     Indication: Systemic scleroderma
     Dosage: FREQUENCY : DAILY;?
     Route: 048
     Dates: start: 202009
  2. TADALAFIL [Suspect]
     Active Substance: TADALAFIL
     Indication: Interstitial lung disease
  3. TADALAFIL [Suspect]
     Active Substance: TADALAFIL
     Indication: Pulmonary arterial hypertension

REACTIONS (1)
  - Death [None]

NARRATIVE: CASE EVENT DATE: 20220210
